FAERS Safety Report 5781084-5 (Version None)
Quarter: 2008Q2

REPORT INFORMATION
  Report Type: 
  Country: None (occurrence: None)
  Receive Date: 20080618
  Receipt Date: 20080430
  Transmission Date: 20081010
  Serious: No
  Sender: FDA-Public Use
  Company Number: US-1166237

PATIENT
  Sex: Male

DRUGS (1)
  1. TRAVATAN Z [Suspect]
     Dosage: OPHTHALMIC
     Route: 047

REACTIONS (3)
  - ABNORMAL SENSATION IN EYE [None]
  - EYE IRRITATION [None]
  - LACRIMATION INCREASED [None]
